FAERS Safety Report 12296537 (Version 1)
Quarter: 2016Q2

REPORT INFORMATION
  Report Type: Spontaneous
  Country: US (occurrence: US)
  Receive Date: 20160422
  Receipt Date: 20160422
  Transmission Date: 20160815
  Serious: No
  Sender: FDA-Public Use
  Company Number: US-PURDUE-USA-2015-0128180

PATIENT
  Sex: Female

DRUGS (2)
  1. OXYCODONE HCL TABLETS (RHODES 91-490) [Suspect]
     Active Substance: OXYCODONE HYDROCHLORIDE
     Indication: ARTHRALGIA
     Dosage: 30-60 MG, Q4H
     Route: 048
     Dates: start: 201512, end: 20151230
  2. OXYCODONE HCL TABLETS (RHODES 91-490) [Suspect]
     Active Substance: OXYCODONE HYDROCHLORIDE
     Indication: SPINAL COLUMN STENOSIS

REACTIONS (2)
  - Drug ineffective [Unknown]
  - Drug withdrawal syndrome [Unknown]
